FAERS Safety Report 12635106 (Version 1)
Quarter: 2016Q3

REPORT INFORMATION
  Report Type: Spontaneous
  Country: TR (occurrence: TR)
  Receive Date: 20160809
  Receipt Date: 20160809
  Transmission Date: 20161109
  Serious: Yes (Other)
  Sender: FDA-Public Use
  Company Number: ALCN2016TR005516

PATIENT
  Age: 9 Year
  Sex: Male

DRUGS (10)
  1. MAXIDEX [Suspect]
     Active Substance: DEXAMETHASONE
     Indication: CORNEAL DEFECT
  2. MAXIDEX [Suspect]
     Active Substance: DEXAMETHASONE
     Indication: CONJUNCTIVITIS
     Dosage: UNK
     Route: 047
  3. EYESTIL [Suspect]
     Active Substance: HYALURONATE SODIUM
     Indication: CONJUNCTIVITIS
     Dosage: UNK
     Route: 047
  4. EYESTIL [Suspect]
     Active Substance: HYALURONATE SODIUM
     Indication: CORNEAL DEFECT
  5. VIGAMOX [Suspect]
     Active Substance: MOXIFLOXACIN HYDROCHLORIDE
     Indication: CONJUNCTIVITIS
     Dosage: UNK
     Route: 047
  6. VIGAMOX [Suspect]
     Active Substance: MOXIFLOXACIN HYDROCHLORIDE
     Indication: CORNEAL DEFECT
  7. CARBAMAZEPINE. [Concomitant]
     Active Substance: CARBAMAZEPINE
     Indication: EPILEPSY
     Dosage: UNK
     Route: 065
  8. METHYLPREDNISOLONE. [Concomitant]
     Active Substance: METHYLPREDNISOLONE
     Indication: SKIN REACTION
     Dosage: 1MG/KG/DAY
     Route: 048
  9. MAXIDEX [Suspect]
     Active Substance: DEXAMETHASONE
     Indication: CONJUNCTIVITIS
     Dosage: UNK
     Route: 047
  10. MAXIDEX [Suspect]
     Active Substance: DEXAMETHASONE
     Indication: CORNEAL DEFECT

REACTIONS (5)
  - Conjunctivitis [None]
  - Persistent corneal epithelial defect [None]
  - Corneal opacity [Unknown]
  - Drug ineffective [Unknown]
  - Madarosis [Unknown]
